FAERS Safety Report 8147262 (Version 2)
Quarter: 2012Q4

REPORT INFORMATION
  Report Type: 
  Country: NL (occurrence: NL)
  Receive Date: 20110922
  Receipt Date: 20121001
  Transmission Date: 20130627
  Serious: Yes (Death, Other)
  Sender: FDA-Public Use
  Company Number: NL-RANBAXY-2011R1-47926

PATIENT

DRUGS (3)
  1. FLUCONAZOLE [Suspect]
     Indication: FUNGAL INFECTION
     Dosage: 5 mg/kg qd
     Route: 065
  2. VINCRISTINE [Interacting]
     Indication: ACUTE LYMPHOCYTIC LEUKAEMIA
     Dosage: UNK
     Route: 065
  3. VINCRISTINE [Interacting]
     Dosage: UNK
     Route: 065

REACTIONS (3)
  - Constipation [Recovering/Resolving]
  - Drug interaction [Recovering/Resolving]
  - Neuropathy peripheral [Recovering/Resolving]
